FAERS Safety Report 13290297 (Version 2)
Quarter: 2017Q1

REPORT INFORMATION
  Report Type: Spontaneous
  Country: GB (occurrence: GB)
  Receive Date: 20170302
  Receipt Date: 20170330
  Transmission Date: 20170428
  Serious: Yes (Other)
  Sender: FDA-Public Use
  Company Number: GB-SA-2017SA032360

PATIENT
  Age: 79 Year
  Sex: Female

DRUGS (1)
  1. MYOZYME [Suspect]
     Active Substance: ALGLUCOSIDASE ALFA
     Route: 042

REACTIONS (2)
  - Facial paralysis [Recovering/Resolving]
  - Device failure [Recovered/Resolved]

NARRATIVE: CASE EVENT DATE: 201702
